FAERS Safety Report 21802862 (Version 1)
Quarter: 2022Q4

REPORT INFORMATION
  Report Type: Spontaneous
  Country: US (occurrence: US)
  Receive Date: 20221231
  Receipt Date: 20221231
  Transmission Date: 20230113
  Serious: No
  Sender: FDA-Public Use
  Company Number: US-ACORDA-ACO_173565_2022

PATIENT
  Sex: Female

DRUGS (1)
  1. INBRIJA [Suspect]
     Active Substance: LEVODOPA
     Indication: Parkinson^s disease
     Dosage: UNK

REACTIONS (5)
  - Device difficult to use [Unknown]
  - Patient dissatisfaction with device [Unknown]
  - Wrong technique in device usage process [Unknown]
  - Intentional underdose [Unknown]
  - Cough [Unknown]
